FAERS Safety Report 9235818 (Version 1)
Quarter: 2013Q2

REPORT INFORMATION
  Report Type: Spontaneous
  Country: None (occurrence: None)
  Receive Date: 20130416
  Receipt Date: 20130416
  Transmission Date: 20140414
  Serious: No
  Sender: FDA-Public Use
  Company Number: None

PATIENT
  Age: 20 Year
  Sex: Female
  Weight: 80.29 kg

DRUGS (1)
  1. IMPLANON [Suspect]

REACTIONS (2)
  - Device physical property issue [None]
  - Medical device complication [None]
